FAERS Safety Report 8971958 (Version 1)
Quarter: 2012Q4

REPORT INFORMATION
  Report Type: 
  Country: GB (occurrence: GB)
  Receive Date: 20121218
  Receipt Date: 20121218
  Transmission Date: 20130627
  Serious: Yes (Other)
  Sender: FDA-Public Use
  Company Number: PHHY2012GB115258

PATIENT
  Age: 81 Year
  Sex: Male

DRUGS (19)
  1. AMOXICILLIN\CLAVULANATE POTASSIUM [Suspect]
     Indication: URINARY TRACT INFECTION
     Dosage: 625 mg, UNK
     Route: 048
     Dates: start: 20121128, end: 20121130
  2. TAZOCIN [Suspect]
     Indication: SEPSIS
     Dosage: 4.5 g, TID
     Route: 042
     Dates: start: 20121130, end: 20121203
  3. TAZOCIN [Suspect]
     Indication: MUMPS
  4. OMEPRAZOLE [Concomitant]
     Dosage: 20 mg, QD
  5. PARACETAMOL [Concomitant]
     Dosage: 500mg-1gm four times
  6. SALBUTAMOL [Concomitant]
     Dosage: 100 ug, UNK
  7. SIMVASTATIN [Concomitant]
     Dosage: 80 mg, QD At night
  8. LATANOPROST [Concomitant]
     Dosage: 2 DF, QD 1 drop in both eyes once at night
     Route: 050
  9. PREGABALIN [Concomitant]
     Dosage: 300 mg, BID
  10. CARBAMAZEPINE [Concomitant]
     Dosage: 200 mg, BID
  11. TIOTROPIUM [Concomitant]
     Dosage: 18 ug, QD
  12. WARFARIN [Concomitant]
  13. RAMIPRIL [Concomitant]
     Dosage: 10 mg, QD
  14. BISOPROLOL [Concomitant]
     Dosage: 10 mg, QD
  15. SERETIDE [Concomitant]
     Dosage: 1 DF, BID 1 puff twice daily
     Route: 055
  16. DIGOXIN [Concomitant]
     Dosage: 125 ug, QD
  17. FUROSEMIDE SODIUM [Concomitant]
     Dosage: 40 mg, QD, In the morning
  18. CEFALEXIN [Concomitant]
     Indication: URINARY TRACT INFECTION
     Dosage: 500 mg, TID
     Dates: start: 20121126
  19. TIGECYCLINE [Concomitant]

REACTIONS (6)
  - Toxic encephalopathy [Recovering/Resolving]
  - Confusional state [Recovering/Resolving]
  - Communication disorder [Recovering/Resolving]
  - Depressed level of consciousness [Recovering/Resolving]
  - Hyperaesthesia [Unknown]
  - Rash [Unknown]
